FAERS Safety Report 7688297-6 (Version None)
Quarter: 2011Q3

REPORT INFORMATION
  Report Type: 
  Country: None (occurrence: None)
  Receive Date: 20110817
  Receipt Date: 20100814
  Transmission Date: 20111222
  Serious: No
  Sender: FDA-Public Use
  Company Number: US-KINGPHARMUSA00001-K201001053

PATIENT
  Age: 58 Year
  Sex: Female

DRUGS (2)
  1. ALPRAZOLAM [Concomitant]
     Indication: INSOMNIA
     Dosage: UNK
  2. CYTOMEL [Suspect]
     Indication: AUTOIMMUNE THYROIDITIS
     Dosage: 5 MCG, BID
     Route: 048

REACTIONS (2)
  - FLUSHING [None]
  - RASH [None]
